FAERS Safety Report 5735526-1 (Version None)
Quarter: 2008Q2

REPORT INFORMATION
  Report Type: 
  Country: None (occurrence: None)
  Receive Date: 20080512
  Receipt Date: 20080428
  Transmission Date: 20081010
  Serious: Yes (Other)
  Sender: FDA-Public Use
  Company Number: CN-GENENTECH-258274

PATIENT
  Age: 45 Year
  Sex: Female

DRUGS (3)
  1. HERCEPTIN [Suspect]
     Indication: BREAST CANCER
     Dosage: 4 MG/KG, UNKNOWN
     Route: 042
     Dates: start: 20070801
  2. HERCEPTIN [Suspect]
     Dosage: 2 MG/KG, Q21D
     Route: 042
     Dates: start: 20070801
  3. PACLITAXEL [Concomitant]
     Indication: BREAST CANCER

REACTIONS (1)
  - DEMYELINATION [None]
